FAERS Safety Report 16416920 (Version 2)
Quarter: 2019Q2

REPORT INFORMATION
  Report Type: Spontaneous
  Country: US (occurrence: US)
  Receive Date: 20190611
  Receipt Date: 20190628
  Transmission Date: 20190711
  Serious: Yes (Hospitalization, Other)
  Sender: FDA-Public Use
  Company Number: US-ASTRAZENECA-2018SF27205

PATIENT
  Age: 24889 Day
  Sex: Female
  Weight: 78.9 kg

DRUGS (32)
  1. NEXIUM 24HR [Suspect]
     Active Substance: ESOMEPRAZOLE MAGNESIUM
     Route: 048
     Dates: start: 200605, end: 201302
  2. PROTONIX [Suspect]
     Active Substance: PANTOPRAZOLE SODIUM
     Dosage: GENERIC
     Route: 065
     Dates: start: 20170830
  3. ATORVASTATIN [Concomitant]
     Active Substance: ATORVASTATIN
  4. TRIAMCINOLONE [Concomitant]
     Active Substance: TRIAMCINOLONE
  5. NEXIUM [Suspect]
     Active Substance: ESOMEPRAZOLE MAGNESIUM
     Route: 048
     Dates: start: 20130211, end: 20130211
  6. PREVACID [Suspect]
     Active Substance: LANSOPRAZOLE
     Route: 065
     Dates: start: 200605, end: 201302
  7. VITAMIN D3 [Concomitant]
     Active Substance: CHOLECALCIFEROL
  8. ISOSORBIDE MONONITRATE. [Concomitant]
     Active Substance: ISOSORBIDE MONONITRATE
  9. LEVOTHYROXINE. [Concomitant]
     Active Substance: LEVOTHYROXINE
  10. PREDNISOLONE. [Concomitant]
     Active Substance: PREDNISOLONE
  11. ACETAMINOPHEN. [Concomitant]
     Active Substance: ACETAMINOPHEN
  12. INFLUENZA VACCINE [Concomitant]
     Active Substance: INFLUENZA VIRUS VACCINE
  13. ASPIRIN. [Concomitant]
     Active Substance: ASPIRIN
  14. NIFEDICAL XL [Concomitant]
     Active Substance: NIFEDIPINE
  15. PREVACID [Suspect]
     Active Substance: LANSOPRAZOLE
     Route: 065
     Dates: start: 20120103
  16. PREVACID [Suspect]
     Active Substance: LANSOPRAZOLE
     Route: 065
     Dates: start: 20060515, end: 20080422
  17. PREVACID 24 HR [Suspect]
     Active Substance: LANSOPRAZOLE
     Route: 065
     Dates: start: 20111107
  18. NEXIUM [Suspect]
     Active Substance: ESOMEPRAZOLE MAGNESIUM
     Route: 048
     Dates: start: 200605, end: 201302
  19. PREVACID 24 HR [Suspect]
     Active Substance: LANSOPRAZOLE
     Route: 065
     Dates: start: 200605, end: 201302
  20. PROTONIX [Suspect]
     Active Substance: PANTOPRAZOLE SODIUM
     Route: 065
     Dates: start: 200605, end: 201302
  21. TRAMADOL. [Concomitant]
     Active Substance: TRAMADOL
  22. FUROSEMIDE. [Concomitant]
     Active Substance: FUROSEMIDE
  23. PRILOSEC [Suspect]
     Active Substance: OMEPRAZOLE MAGNESIUM
     Route: 048
     Dates: start: 200605, end: 201302
  24. PRILOSEC OTC [Suspect]
     Active Substance: OMEPRAZOLE MAGNESIUM
     Route: 048
     Dates: start: 200605, end: 201302
  25. PROTONIX [Suspect]
     Active Substance: PANTOPRAZOLE SODIUM
     Route: 065
     Dates: start: 20160621
  26. AMMONIUM LACTATE. [Concomitant]
     Active Substance: AMMONIUM LACTATE
  27. NITROGLYCERIN. [Concomitant]
     Active Substance: NITROGLYCERIN
  28. VALSARTAN. [Concomitant]
     Active Substance: VALSARTAN
  29. DEXILANT [Suspect]
     Active Substance: DEXLANSOPRAZOLE
     Route: 065
     Dates: start: 200605, end: 201302
  30. ZANTAC [Concomitant]
     Active Substance: RANITIDINE HYDROCHLORIDE
  31. EUFLEXXA [Concomitant]
     Active Substance: HYALURONATE SODIUM
  32. DICLOFENAC [Concomitant]
     Active Substance: DICLOFENAC

REACTIONS (7)
  - End stage renal disease [Unknown]
  - Tubulointerstitial nephritis [Unknown]
  - Renal injury [Unknown]
  - Dyspepsia [Unknown]
  - Acute kidney injury [Unknown]
  - Chronic kidney disease [Unknown]
  - Renal failure [Unknown]

NARRATIVE: CASE EVENT DATE: 20121002
